FAERS Safety Report 9405331 (Version 2)
Quarter: 2013Q3

REPORT INFORMATION
  Report Type: Spontaneous
  Country: US (occurrence: US)
  Receive Date: 20130717
  Receipt Date: 20130807
  Transmission Date: 20140515
  Serious: Yes (Other)
  Sender: FDA-Public Use
  Company Number: US-JNJFOC-20130709012

PATIENT
  Sex: Male

DRUGS (5)
  1. XARELTO [Suspect]
     Indication: THROMBOSIS PROPHYLAXIS
     Route: 048
  2. XARELTO [Suspect]
     Indication: KNEE ARTHROPLASTY
     Route: 048
  3. XARELTO [Suspect]
     Indication: HIP ARTHROPLASTY
     Route: 048
  4. NUCYNTA ER [Suspect]
     Indication: KNEE ARTHROPLASTY
     Route: 048
  5. NUCYNTA ER [Suspect]
     Indication: HIP ARTHROPLASTY
     Route: 048

REACTIONS (1)
  - Hallucination [Recovered/Resolved]
